FAERS Safety Report 9729739 (Version 2)
Quarter: 2013Q4

REPORT INFORMATION
  Report Type: Spontaneous
  Country: US (occurrence: US)
  Receive Date: 20131204
  Receipt Date: 20131204
  Transmission Date: 20140711
  Serious: No
  Sender: FDA-Public Use
  Company Number: US-GILEAD-2009-0021727

PATIENT
  Age: 86 Year
  Sex: Female

DRUGS (5)
  1. LETAIRIS [Suspect]
     Indication: PULMONARY ARTERIAL HYPERTENSION
     Route: 048
     Dates: start: 20090423, end: 20090430
  2. SIMVASTATIN [Concomitant]
  3. ATENOLOL [Concomitant]
  4. ASPIRIN [Concomitant]
  5. XANAX [Concomitant]

REACTIONS (4)
  - Vision blurred [Unknown]
  - Pain in extremity [Unknown]
  - Asthenia [Unknown]
  - Dyspnoea [Unknown]
